FAERS Safety Report 13612638 (Version 3)
Quarter: 2017Q2

REPORT INFORMATION
  Report Type: Spontaneous
  Country: CA (occurrence: CA)
  Receive Date: 20170605
  Receipt Date: 20170605
  Transmission Date: 20170830
  Serious: Yes (Other)
  Sender: FDA-Public Use
  Company Number: CA-TEVA-775580ACC

PATIENT
  Age: 72 Year
  Sex: Female
  Weight: 73 kg

DRUGS (11)
  1. CALCIUM AND VITAMIN D [Concomitant]
     Active Substance: CALCIUM\VITAMIN D
  2. TOVIAZ [Concomitant]
     Active Substance: FESOTERODINE FUMARATE
  3. AMLODIPINE [Concomitant]
     Active Substance: AMLODIPINE BESYLATE
  4. METFORMIN [Concomitant]
     Active Substance: METFORMIN HYDROCHLORIDE
  5. RISEDRONATE (MANUFACTURER UNKNOWN) [Concomitant]
     Active Substance: RISEDRONATE SODIUM
  6. ASA [Concomitant]
     Active Substance: ASPIRIN
  7. ATORVASTATIN CALCIUM. [Concomitant]
     Active Substance: ATORVASTATIN CALCIUM
  8. IRBESARTAN. [Concomitant]
     Active Substance: IRBESARTAN
  9. MIRTAZAPINE. [Suspect]
     Active Substance: MIRTAZAPINE
     Indication: DEPRESSION
     Route: 048
  10. OXAZEPAM. [Concomitant]
     Active Substance: OXAZEPAM
  11. SYNTHROID [Concomitant]
     Active Substance: LEVOTHYROXINE SODIUM

REACTIONS (1)
  - Inappropriate antidiuretic hormone secretion [Recovered/Resolved]
